FAERS Safety Report 11859546 (Version 2)
Quarter: 2016Q1

REPORT INFORMATION
  Report Type: Spontaneous
  Country: US (occurrence: US)
  Receive Date: 20151221
  Receipt Date: 20160107
  Transmission Date: 20160526
  Serious: Yes (Hospitalization)
  Sender: FDA-Public Use
  Company Number: US-LUNDBECK-DKLU2007936

PATIENT
  Sex: Male
  Weight: 7 kg

DRUGS (2)
  1. SABRIL [Suspect]
     Active Substance: VIGABATRIN
     Indication: EPILEPSY
  2. SABRIL [Suspect]
     Active Substance: VIGABATRIN
     Indication: EPILEPSY
     Route: 048
     Dates: start: 20151026

REACTIONS (4)
  - Respiratory disorder [Recovered/Resolved]
  - Eye movement disorder [Recovered/Resolved]
  - Lethargy [Recovered/Resolved]
  - Viral infection [Recovered/Resolved]
